FAERS Safety Report 4714179-5 (Version None)
Quarter: 2005Q3

REPORT INFORMATION
  Report Type: 
  Country: None (occurrence: None)
  Receive Date: 20050713
  Receipt Date: 20050713
  Transmission Date: 20060218
  Serious: No
  Sender: FDA-Public Use
  Company Number: None

PATIENT
  Age: 35 Year
  Sex: Female
  Weight: 111.1313 kg

DRUGS (1)
  1. DEPAKOTE [Suspect]
     Indication: CONVULSION
     Dosage: 1500MG NOW 125MG
     Dates: start: 19840101, end: 20050101

REACTIONS (9)
  - ARTHRITIS [None]
  - DIVERTICULITIS [None]
  - GASTROINTESTINAL INFLAMMATION [None]
  - JAW DISORDER [None]
  - METABOLIC DISORDER [None]
  - OEDEMA [None]
  - OSTEONECROSIS [None]
  - PNEUMONIA [None]
  - TOOTH ABSCESS [None]
